FAERS Safety Report 13176587 (Version 1)
Quarter: 2017Q1

REPORT INFORMATION
  Report Type: Spontaneous
  Country: US (occurrence: US)
  Receive Date: 20170201
  Receipt Date: 20170201
  Transmission Date: 20170428
  Serious: Yes (Hospitalization)
  Sender: FDA-Public Use
  Company Number: US-INGENUS PHARMACEUTICALS NJ, LLC-ING201701-000034

PATIENT
  Age: 69 Year
  Sex: Male

DRUGS (3)
  1. CARISOPRODOL AND ASPIRIN [Suspect]
     Active Substance: ASPIRIN\CARISOPRODOL
  2. CARISOPRODOL AND ASPIRIN [Suspect]
     Active Substance: ASPIRIN\CARISOPRODOL
  3. CARISOPRODOL AND ASPIRIN [Suspect]
     Active Substance: ASPIRIN\CARISOPRODOL

REACTIONS (3)
  - Kounis syndrome [Unknown]
  - Anaphylactic reaction [Unknown]
  - Myocardial infarction [Recovered/Resolved]
